FAERS Safety Report 16048497 (Version 1)
Quarter: 2019Q1

REPORT INFORMATION
  Report Type: Spontaneous
  Country: CA (occurrence: CA)
  Receive Date: 20190307
  Receipt Date: 20190307
  Transmission Date: 20190418
  Serious: Yes (Other)
  Sender: FDA-Public Use
  Company Number: CA-BAYER-2019-044622

PATIENT
  Age: 26 Year
  Sex: Female

DRUGS (3)
  1. HYDROXYCHLOROQUINE [Concomitant]
     Active Substance: HYDROXYCHLOROQUINE
  2. ACETYLSALICYLIC ACID (CARDIO) [Suspect]
     Active Substance: ASPIRIN
     Indication: ANTIPHOSPHOLIPID ANTIBODIES POSITIVE
     Dosage: 81 MG
  3. HEPARIN [Concomitant]
     Active Substance: HEPARIN SODIUM

REACTIONS (10)
  - Placental insufficiency [None]
  - Product use in unapproved indication [None]
  - Foetal growth restriction [None]
  - HELLP syndrome [None]
  - Premature delivery [None]
  - Exposure during pregnancy [None]
  - Placental infarction [None]
  - Platelet count decreased [None]
  - Off label use [None]
  - Pre-eclampsia [None]
